FAERS Safety Report 6921845-X (Version None)
Quarter: 2010Q3

REPORT INFORMATION
  Report Type: 
  Country: None (occurrence: None)
  Receive Date: 20100812
  Receipt Date: 20100802
  Transmission Date: 20110219
  Serious: Yes (Hospitalization, Other)
  Sender: FDA-Public Use
  Company Number: BR-ABBOTT-10P-020-0661530-00

PATIENT
  Sex: Female
  Weight: 70 kg

DRUGS (6)
  1. HUMIRA [Suspect]
     Indication: RHEUMATOID ARTHRITIS
     Route: 058
  2. PREDNISONE TAB [Suspect]
     Indication: MUSCULOSKELETAL PAIN
     Route: 048
  3. PREDNISONE TAB [Concomitant]
     Route: 048
  4. AZATHIOPRINE [Concomitant]
     Indication: MUSCULOSKELETAL PAIN
     Route: 048
  5. PARACETAMOL [Concomitant]
     Indication: ARTHRALGIA
     Route: 048
  6. INSULINE [Concomitant]
     Indication: DIABETES MELLITUS

REACTIONS (4)
  - ARTHRALGIA [None]
  - HAEMATOCHEZIA [None]
  - RHEUMATOID ARTHRITIS [None]
  - SYNCOPE [None]
